FAERS Safety Report 9209657 (Version 1)
Quarter: 2013Q1

REPORT INFORMATION
  Report Type: Spontaneous
  Country: US (occurrence: None)
  Receive Date: 20120820
  Receipt Date: 20120820
  Transmission Date: 20140127
  Serious: No
  Sender: FDA-Public Use
  Company Number: 1000030400

PATIENT
  Age: 59 Year
  Sex: Female

DRUGS (4)
  1. VIIBRYD [Suspect]
     Indication: DEPRESSION
     Dosage: 10 MG (10 MG, 1 IN 1 D, TABLETS
     Dates: start: 201203, end: 201203
  2. GENERIC ANTIHISTAMINE (NOS) (GENERIC ANTIHISTAMINE (NOS) (GENERIC) [Concomitant]
  3. BENADRYL (DIPHENHYDRAMINE) (DIPHENHYDRAMINE) [Concomitant]
  4. BIOIDENTICAL HORMONES (NOS) BIOIDENTICAL HORMONES (NOS) (BIOIDENTICAL HORMONES) (NOS) [Concomitant]

REACTIONS (1)
  - Diarrhoea [None]
